FAERS Safety Report 8512960-8 (Version None)
Quarter: 2012Q3

REPORT INFORMATION
  Report Type: 
  Country: None (occurrence: None)
  Receive Date: 20120716
  Receipt Date: 20120710
  Transmission Date: 20120928
  Serious: Yes (Life-Threatening, Other)
  Sender: FDA-Public Use
  Company Number: US-ASTRAZENECA-2012SE47397

PATIENT
  Age: 24 Year
  Sex: Female

DRUGS (1)
  1. QUETIAPINE [Suspect]
     Route: 048

REACTIONS (8)
  - HOT FLUSH [None]
  - DRY SKIN [None]
  - TACHYCARDIA [None]
  - OVERDOSE [None]
  - MENTAL STATUS CHANGES [None]
  - COMA [None]
  - MUCOSAL DRYNESS [None]
  - MIOSIS [None]
